FAERS Safety Report 22022868 (Version 1)
Quarter: 2023Q1

REPORT INFORMATION
  Report Type: Report from Study
  Country: NL (occurrence: NL)
  Receive Date: 20230222
  Receipt Date: 20230222
  Transmission Date: 20230417
  Serious: Yes (Death)
  Sender: FDA-Public Use
  Company Number: NL-ABBVIE-4280023

PATIENT
  Sex: Female
  Weight: 51 kg

DRUGS (10)
  1. VENETOCLAX [Suspect]
     Active Substance: VENETOCLAX
     Indication: T-cell type acute leukaemia
     Dosage: DAYS 3-28
     Route: 048
     Dates: start: 20230118
  2. VENETOCLAX [Suspect]
     Active Substance: VENETOCLAX
     Indication: T-cell type acute leukaemia
     Dosage: DAY 1
     Route: 048
     Dates: start: 20230116, end: 20230116
  3. VENETOCLAX [Suspect]
     Active Substance: VENETOCLAX
     Indication: T-cell type acute leukaemia
     Dosage: DAY 2
     Route: 048
     Dates: start: 20230117, end: 20230117
  4. DARATUMUMAB [Concomitant]
     Active Substance: DARATUMUMAB
     Indication: T-cell type acute leukaemia
     Dates: start: 2023
  5. COTRIMOXAZOLE [Concomitant]
     Active Substance: SULFAMETHOXAZOLE\TRIMETHOPRIM
     Indication: Supportive care
  6. ISAVUCONAZOLE [Concomitant]
     Active Substance: ISAVUCONAZOLE
     Indication: CYP3A4 gene status assay
  7. AMPHOTERICIN B [Concomitant]
     Active Substance: AMPHOTERICIN B
     Indication: Product used for unknown indication
  8. NAVITOCLAX [Suspect]
     Active Substance: NAVITOCLAX
     Indication: T-cell type acute leukaemia
     Dosage: DRUG NOT ADMINISTERED
  9. CIPROFLOXACIN [Concomitant]
     Active Substance: CIPROFLOXACIN
     Indication: Supportive care
  10. ENTRECTINIB [Concomitant]
     Active Substance: ENTRECTINIB
     Indication: Product used for unknown indication
     Dates: start: 20220825, end: 20220926

REACTIONS (3)
  - Death [Fatal]
  - Off label use [Recovered/Resolved]
  - Nausea [Not Recovered/Not Resolved]

NARRATIVE: CASE EVENT DATE: 20230101
